FAERS Safety Report 15690726 (Version 1)
Quarter: 2018Q4

REPORT INFORMATION
  Report Type: Report from Study
  Country: US (occurrence: US)
  Receive Date: 20181205
  Receipt Date: 20181205
  Transmission Date: 20190205
  Serious: Yes (Hospitalization, Other)
  Sender: FDA-Public Use
  Company Number: US-THERAVANCE-2018-000008

PATIENT
  Age: 31 Year
  Sex: Female
  Weight: 61.8 kg

DRUGS (5)
  1. TELAVANCIN [Suspect]
     Active Substance: TELAVANCIN
     Indication: STAPHYLOCOCCAL BACTERAEMIA
     Dosage: 386.25 MG, QD
     Route: 042
     Dates: start: 20180223
  2. FENTANYL. [Concomitant]
     Active Substance: FENTANYL
     Indication: SEDATIVE THERAPY
     Dosage: 50 ?G, UNK
     Route: 041
     Dates: start: 20180224, end: 20180224
  3. ATIVAN [Concomitant]
     Active Substance: LORAZEPAM
     Indication: PRODUCT USED FOR UNKNOWN INDICATION
     Dosage: 1 G, UNK
     Route: 042
     Dates: start: 20180224
  4. PROPOFOL. [Concomitant]
     Active Substance: PROPOFOL
     Indication: SEDATIVE THERAPY
     Dosage: 5 ?G, UNK
     Route: 041
     Dates: start: 20180224, end: 20180224
  5. PRECEDEX [Concomitant]
     Active Substance: DEXMEDETOMIDINE HYDROCHLORIDE
     Indication: SEDATIVE THERAPY
     Dosage: 4 ?G, UNK
     Route: 041
     Dates: start: 20180224, end: 20180224

REACTIONS (1)
  - Respiratory failure [Recovered/Resolved]

NARRATIVE: CASE EVENT DATE: 20180224
